FAERS Safety Report 16527449 (Version 1)
Quarter: 2019Q3

REPORT INFORMATION
  Report Type: Spontaneous
  Country: US (occurrence: US)
  Receive Date: 20190703
  Receipt Date: 20190703
  Transmission Date: 20191004
  Serious: No
  Sender: FDA-Public Use
  Company Number: US-SA-2019SA159212

PATIENT
  Sex: Female

DRUGS (3)
  1. DUPIXENT [Suspect]
     Active Substance: DUPILUMAB
     Indication: OSTEOARTHRITIS
  2. DUPIXENT [Suspect]
     Active Substance: DUPILUMAB
     Indication: ASTHMA
     Dosage: UNK UNK, QOW
     Dates: start: 20190323
  3. DUPIXENT [Suspect]
     Active Substance: DUPILUMAB
     Indication: OSTEOARTHRITIS

REACTIONS (1)
  - Dermatitis [Unknown]
